FAERS Safety Report 9439181 (Version 1)
Quarter: 2013Q3

REPORT INFORMATION
  Report Type: Spontaneous
  Country: DE (occurrence: DE)
  Receive Date: 20130803
  Receipt Date: 20130803
  Transmission Date: 20140515
  Serious: Yes (Hospitalization)
  Sender: FDA-Public Use
  Company Number: DE-B.I. PHARMACEUTICALS,INC./RIDGEFIELD-2013-DE-01838DE

PATIENT
  Age: 78 Year
  Sex: Female
  Weight: 112 kg

DRUGS (25)
  1. PRADAXA [Suspect]
     Indication: ATRIAL FIBRILLATION
     Dosage: 300 MG
     Dates: start: 20130217, end: 201305
  2. PRADAXA [Suspect]
     Indication: ATRIAL FIBRILLATION
     Dosage: 300 MG
     Dates: start: 20130517, end: 201307
  3. PRADAXA [Suspect]
     Indication: HYPERTENSION
     Dosage: 150 MG
     Dates: start: 201307, end: 201307
  4. PRADAXA [Suspect]
     Indication: CARDIAC FAILURE
     Dosage: 220 MG
     Dates: start: 201307
  5. PRADAXA [Suspect]
     Indication: TRICUSPID VALVE INCOMPETENCE
  6. SPIRO [Concomitant]
     Indication: ATRIAL FIBRILLATION
     Dosage: 25 NR
  7. SPIRO [Concomitant]
     Indication: ATRIAL FIBRILLATION
  8. SPIRO [Concomitant]
     Indication: HYPERTENSION
  9. SPIRO [Concomitant]
     Indication: CARDIAC FAILURE
  10. SPIRO [Concomitant]
     Indication: TRICUSPID VALVE INCOMPETENCE
  11. BISO PLUS [Concomitant]
     Indication: ATRIAL FIBRILLATION
     Dosage: 0.5 ANZ
  12. BISO PLUS [Concomitant]
     Indication: ATRIAL FIBRILLATION
  13. BISO PLUS [Concomitant]
     Indication: HYPERTENSION
  14. BISO PLUS [Concomitant]
     Indication: CARDIAC FAILURE
  15. BISO PLUS [Concomitant]
     Indication: TRICUSPID VALVE INCOMPETENCE
  16. FURO [Concomitant]
     Indication: ATRIAL FIBRILLATION
     Dosage: 60 NR
  17. FURO [Concomitant]
     Indication: ATRIAL FIBRILLATION
  18. FURO [Concomitant]
     Indication: HYPERTENSION
  19. FURO [Concomitant]
     Indication: CARDIAC FAILURE
  20. FURO [Concomitant]
     Indication: TRICUSPID VALVE INCOMPETENCE
  21. ALLO [Concomitant]
     Indication: ATRIAL FIBRILLATION
     Dosage: 150 NR
  22. ALLO [Concomitant]
     Indication: ATRIAL FIBRILLATION
  23. ALLO [Concomitant]
     Indication: HYPERTENSION
  24. ALLO [Concomitant]
     Indication: CARDIAC FAILURE
  25. ALLO [Concomitant]
     Indication: TRICUSPID VALVE INCOMPETENCE

REACTIONS (3)
  - Postmenopausal haemorrhage [Recovered/Resolved]
  - Polyp [Recovered/Resolved]
  - Vaginal haemorrhage [Recovered/Resolved]
